FAERS Safety Report 19196297 (Version 1)
Quarter: 2021Q2

REPORT INFORMATION
  Report Type: Spontaneous
  Country: US (occurrence: US)
  Receive Date: 20210429
  Receipt Date: 20210429
  Transmission Date: 20210717
  Serious: Yes (Other)
  Sender: FDA-Public Use
  Company Number: US-BAYER-2021-129883

PATIENT
  Age: 82 Year
  Weight: 66.22 kg

DRUGS (5)
  1. ZYRTEC [Concomitant]
     Active Substance: CETIRIZINE HYDROCHLORIDE
     Indication: HYPERSENSITIVITY
  2. AMLODIPINE [Concomitant]
     Active Substance: AMLODIPINE BESYLATE
     Indication: BLOOD PRESSURE MEASUREMENT
  3. ASPIRIN (PAIN AND FEVER) [Suspect]
     Active Substance: ASPIRIN
  4. SULFUR. [Concomitant]
     Active Substance: SULFUR
  5. COVID?19 VACCINE NOS. [Concomitant]
     Active Substance: COVID-19 VACCINE NOS

REACTIONS (1)
  - Haemorrhage [Unknown]
